FAERS Safety Report 8529065-2 (Version None)
Quarter: 2012Q3

REPORT INFORMATION
  Report Type: 
  Country: None (occurrence: None)
  Receive Date: 20120716
  Receipt Date: 20120716
  Transmission Date: 20120928
  Serious: Yes (Other)
  Sender: FDA-Public Use
  Company Number: None

PATIENT
  Sex: Female
  Weight: 72.5755 kg

DRUGS (1)
  1. CIPROFLAXACIN [Suspect]
     Indication: DIVERTICULITIS
     Dosage: 500 MG 2 TIMES A DAY
     Dates: start: 20120604, end: 20120607

REACTIONS (2)
  - TENDONITIS [None]
  - MOVEMENT DISORDER [None]
